FAERS Safety Report 5800568-4 (Version None)
Quarter: 2008Q3

REPORT INFORMATION
  Report Type: 
  Country: None (occurrence: None)
  Receive Date: 20080703
  Receipt Date: 20080626
  Transmission Date: 20090109
  Serious: Yes (Death)
  Sender: FDA-Public Use
  Company Number: ES-ROCHE-565145

PATIENT
  Sex: Male
  Weight: 64 kg

DRUGS (3)
  1. CAPECITABINE [Suspect]
     Dosage: GIVEN ON DAYS 1-14 OF EVERY THREE-WEEK-CYCLE.
     Route: 048
     Dates: start: 20080313, end: 20080417
  2. BEVACIZUMAB [Suspect]
     Dosage: FORM REPORTED AS INFUSSION.
     Route: 042
     Dates: start: 20080313, end: 20080417
  3. OXALIPLATIN [Suspect]
     Dosage: FORM REPORTED AS INFUSION.
     Route: 042
     Dates: start: 20080313, end: 20080417

REACTIONS (1)
  - GASTROENTERITIS [None]
